FAERS Safety Report 5591565-5 (Version None)
Quarter: 2008Q1

REPORT INFORMATION
  Report Type: 
  Country: None (occurrence: None)
  Receive Date: 20080115
  Receipt Date: 20080111
  Transmission Date: 20080703
  Serious: Yes (Hospitalization)
  Sender: FDA-Public Use
  Company Number: A0684753A

PATIENT
  Age: 34 Year
  Sex: Female

DRUGS (6)
  1. NICORETTE [Suspect]
     Indication: SMOKING CESSATION THERAPY
     Dosage: 4MG SINGLE DOSE
     Route: 002
     Dates: start: 20070507, end: 20070507
  2. SIMVASTATIN [Concomitant]
     Route: 048
     Dates: start: 20060801
  3. PROPRANOLOL [Concomitant]
     Route: 048
     Dates: start: 20060801
  4. CAPTOPRIL [Concomitant]
     Route: 048
     Dates: start: 20060801
  5. AAS [Concomitant]
     Route: 048
     Dates: start: 20060801
  6. OMEPRAZOLE [Concomitant]
     Route: 048
     Dates: start: 20060801

REACTIONS (6)
  - CHEST PAIN [None]
  - DYSPNOEA [None]
  - FATIGUE [None]
  - INFARCTION [None]
  - MALAISE [None]
  - PAIN IN EXTREMITY [None]
